FAERS Safety Report 7350411-X (Version None)
Quarter: 2011Q1

REPORT INFORMATION
  Report Type: 
  Country: None (occurrence: None)
  Receive Date: 20110222
  Receipt Date: 20101213
  Transmission Date: 20110831
  Serious: No
  Sender: FDA-Public Use
  Company Number: 023737

PATIENT
  Sex: Female
  Weight: 67 kg

DRUGS (6)
  1. LACOSAMIDE [Suspect]
     Indication: EPILEPSY
     Dosage: 50 MG BID ORAL
     Route: 048
     Dates: start: 20101201
  2. ZONEGRAN [Concomitant]
  3. TOPAMAX [Concomitant]
  4. TRILEPTAL [Concomitant]
  5. PAXIL [Concomitant]
  6. KEPPRA [Concomitant]

REACTIONS (1)
  - ABDOMINAL PAIN [None]
